FAERS Safety Report 24434059 (Version 1)
Quarter: 2024Q4

REPORT INFORMATION
  Report Type: Spontaneous
  Country: CN (occurrence: CN)
  Receive Date: 20241014
  Receipt Date: 20241014
  Transmission Date: 20250114
  Serious: Yes (Life-Threatening, Hospitalization)
  Sender: BAYER HEALTHCARE PHARMACEUTICALS INC.
  Company Number: CN-BAYER-2024A145663

PATIENT
  Age: 33 Year
  Sex: Female
  Weight: 50 kg

DRUGS (3)
  1. GADOBUTROL [Suspect]
     Active Substance: GADOBUTROL
     Indication: Magnetic resonance imaging abdominal
     Dosage: 15 ML, ONCE
     Route: 042
     Dates: start: 20241006, end: 20241006
  2. GADOBUTROL [Suspect]
     Active Substance: GADOBUTROL
     Indication: Hepatic mass
  3. GADOBUTROL [Suspect]
     Active Substance: GADOBUTROL
     Indication: Hepatic cyst

REACTIONS (10)
  - Contrast media allergy [Recovering/Resolving]
  - Rhinorrhoea [Recovering/Resolving]
  - Sneezing [Recovering/Resolving]
  - Flushing [Recovering/Resolving]
  - Eyelid oedema [Recovering/Resolving]
  - Feeling cold [Recovering/Resolving]
  - Vision blurred [Recovering/Resolving]
  - Dysphonia [Recovering/Resolving]
  - Blood pressure decreased [Recovered/Resolved]
  - Heart rate decreased [Recovered/Resolved]

NARRATIVE: CASE EVENT DATE: 20241006
